FAERS Safety Report 23290935 (Version 1)
Quarter: 2023Q4

REPORT INFORMATION
  Report Type: Spontaneous
  Country: CA (occurrence: CA)
  Receive Date: 20231213
  Receipt Date: 20231213
  Transmission Date: 20240109
  Serious: Yes (Disabling)
  Sender: FDA-Public Use
  Company Number: CA-CELLTRION INC.-2023CA023458

PATIENT

DRUGS (6)
  1. HERZUMA [Suspect]
     Active Substance: TRASTUZUMAB-PKRB
     Indication: HER2 positive breast cancer
     Dosage: 441 MG 1 EVERY 3 WEEKS
     Route: 042
  2. HERZUMA [Suspect]
     Active Substance: TRASTUZUMAB-PKRB
     Indication: Breast cancer metastatic
  3. ELIQUIS [Suspect]
     Active Substance: APIXABAN
  4. PERTUZUMAB [Suspect]
     Active Substance: PERTUZUMAB
  5. TAMOXIFEN [Suspect]
     Active Substance: TAMOXIFEN
  6. TAXOL [Suspect]
     Active Substance: PACLITAXEL

REACTIONS (4)
  - Sleep disorder [Recovering/Resolving]
  - Muscle spasms [Recovering/Resolving]
  - Product substitution issue [Recovering/Resolving]
  - Intentional product use issue [Unknown]
